FAERS Safety Report 5066944-5 (Version None)
Quarter: 2006Q3

REPORT INFORMATION
  Report Type: 
  Country: None (occurrence: None)
  Receive Date: 20060726
  Receipt Date: 20060718
  Transmission Date: 20061208
  Serious: Yes (Other)
  Sender: FDA-Public Use
  Company Number: DE-2006-019235

PATIENT
  Sex: Female

DRUGS (1)
  1. MIRENA [Suspect]
     Dosage: 20 UG/DAY, CONT, INTRA-UTERINE
     Route: 015
     Dates: start: 20051104, end: 20060601

REACTIONS (5)
  - ANGINA PECTORIS [None]
  - ASTHENIA [None]
  - DYSPNOEA [None]
  - MYOCARDIAL ISCHAEMIA [None]
  - PALPITATIONS [None]
